FAERS Safety Report 5075026-8 (Version None)
Quarter: 2006Q3

REPORT INFORMATION
  Report Type: 
  Country: None (occurrence: None)
  Receive Date: 20060804
  Receipt Date: 20060728
  Transmission Date: 20061208
  Serious: Yes (Death)
  Sender: FDA-Public Use
  Company Number: S06-USA-02941-01

PATIENT
  Age: 45 Year
  Sex: Female

DRUGS (1)
  1. CAMPRAL [Suspect]
     Indication: ALCOHOLISM
     Dosage: 666 MG TID PO
     Route: 048
     Dates: start: 20060101, end: 20060101

REACTIONS (3)
  - AZOTAEMIA [None]
  - DIALYSIS [None]
  - RENAL IMPAIRMENT [None]
